FAERS Safety Report 23859565 (Version 1)
Quarter: 2024Q2

REPORT INFORMATION
  Report Type: Spontaneous
  Country: US (occurrence: US)
  Receive Date: 20240515
  Receipt Date: 20240515
  Transmission Date: 20240716
  Serious: Yes (Hospitalization, Other)
  Sender: FDA-Public Use
  Company Number: US-SANDOZ-SDZ2024US048463

PATIENT
  Sex: Female

DRUGS (1)
  1. RECLAST [Suspect]
     Active Substance: ZOLEDRONIC ACID
     Indication: Product used for unknown indication
     Dosage: UNK
     Route: 065
     Dates: start: 20231212

REACTIONS (18)
  - Respiratory failure [Unknown]
  - Pyrexia [Unknown]
  - Pain [Unknown]
  - Dyspnoea [Unknown]
  - Cough [Unknown]
  - Rash [Unknown]
  - Dizziness [Unknown]
  - Pallor [Unknown]
  - Arthralgia [Unknown]
  - Agitation [Unknown]
  - Cognitive disorder [Unknown]
  - Hypoaesthesia [Unknown]
  - Pruritus [Unknown]
  - Contusion [Unknown]
  - Contusion [Unknown]
  - Depression [Unknown]
  - Frustration tolerance decreased [Unknown]
  - Asthma [Unknown]
